FAERS Safety Report 7166989-5 (Version None)
Quarter: 2010Q4

REPORT INFORMATION
  Report Type: 
  Country: None (occurrence: None)
  Receive Date: 20101216
  Receipt Date: 20101214
  Transmission Date: 20110411
  Serious: Yes (Life-Threatening, Hospitalization)
  Sender: FDA-Public Use
  Company Number: A0883864A

PATIENT
  Age: 66 Year
  Sex: Male
  Weight: 64.5 kg

DRUGS (2)
  1. EPIVIR-HBV [Suspect]
     Dosage: 150MG PER DAY
     Route: 048
     Dates: start: 20100714, end: 20100817
  2. VIREAD [Concomitant]
     Dosage: 300MGD PER DAY
     Route: 048
     Dates: start: 20100714

REACTIONS (3)
  - HAEMATEMESIS [None]
  - NAUSEA [None]
  - ULCER HAEMORRHAGE [None]
